FAERS Safety Report 13681267 (Version 1)
Quarter: 2017Q2

REPORT INFORMATION
  Report Type: Spontaneous
  Country: US (occurrence: US)
  Receive Date: 20170623
  Receipt Date: 20170623
  Transmission Date: 20170830
  Serious: No
  Sender: FDA-Public Use
  Company Number: US-PFIZER INC-2017271925

PATIENT
  Sex: Female

DRUGS (1)
  1. ZINECARD [Suspect]
     Active Substance: DEXRAZOXANE HYDROCHLORIDE
     Indication: NON-HODGKIN^S LYMPHOMA
     Dosage: UNK (ON HER EIGHTH CYCLE )

REACTIONS (2)
  - Product use in unapproved indication [Unknown]
  - Ejection fraction decreased [Unknown]
